FAERS Safety Report 22084624 (Version 1)
Quarter: 2023Q1

REPORT INFORMATION
  Report Type: Spontaneous
  Country: JP (occurrence: JP)
  Receive Date: 20230310
  Receipt Date: 20230310
  Transmission Date: 20230417
  Serious: Yes (Other)
  Sender: FDA-Public Use
  Company Number: JP-ELI_LILLY_AND_COMPANY-JP202109012599

PATIENT
  Age: 31 Year
  Sex: Female
  Weight: 55 kg

DRUGS (16)
  1. ADCIRCA [Suspect]
     Active Substance: TADALAFIL
     Indication: Pulmonary arterial hypertension
     Dosage: 40 MG, DAILY
     Route: 065
     Dates: start: 20170301
  2. UPTRAVI [Suspect]
     Active Substance: SELEXIPAG
     Indication: Pulmonary arterial hypertension
     Dosage: 0.4 MG, DAILY
     Route: 048
     Dates: start: 20170516, end: 20170522
  3. UPTRAVI [Suspect]
     Active Substance: SELEXIPAG
     Dosage: 0.8 MG, DAILY
     Route: 048
     Dates: start: 20170523, end: 20170605
  4. UPTRAVI [Suspect]
     Active Substance: SELEXIPAG
     Dosage: 1.2 MG, DAILY
     Route: 048
     Dates: start: 20170606, end: 20170619
  5. UPTRAVI [Suspect]
     Active Substance: SELEXIPAG
     Dosage: 1.4 MG, DAILY
     Route: 048
     Dates: start: 20170620, end: 20170703
  6. UPTRAVI [Suspect]
     Active Substance: SELEXIPAG
     Dosage: 1.6 MG, DAILY
     Route: 048
     Dates: start: 20170704, end: 20170717
  7. UPTRAVI [Suspect]
     Active Substance: SELEXIPAG
     Dosage: 1.8 MG, DAILY
     Route: 048
     Dates: start: 20170718, end: 20170731
  8. UPTRAVI [Suspect]
     Active Substance: SELEXIPAG
     Dosage: 2.0 MG, DAILY
     Route: 048
     Dates: start: 20170801, end: 20170814
  9. UPTRAVI [Suspect]
     Active Substance: SELEXIPAG
     Dosage: 2.2 MG, DAILY
     Route: 048
     Dates: start: 20170815, end: 20170828
  10. UPTRAVI [Suspect]
     Active Substance: SELEXIPAG
     Dosage: 2.4 MG, DAILY
     Route: 048
     Dates: start: 20170829, end: 20170911
  11. UPTRAVI [Suspect]
     Active Substance: SELEXIPAG
     Dosage: 2.6 MG, DAILY
     Route: 048
     Dates: start: 20170912, end: 20170925
  12. UPTRAVI [Suspect]
     Active Substance: SELEXIPAG
     Dosage: 2.8 MG, DAILY
     Route: 048
     Dates: start: 20170926, end: 20171009
  13. UPTRAVI [Suspect]
     Active Substance: SELEXIPAG
     Dosage: 3 MG, DAILY
     Route: 048
     Dates: start: 20171010, end: 20171023
  14. UPTRAVI [Suspect]
     Active Substance: SELEXIPAG
     Dosage: 3.2 MG, DAILY
     Route: 048
     Dates: start: 20171024
  15. OPSUMIT [Concomitant]
     Active Substance: MACITENTAN
     Indication: Pulmonary arterial hypertension
     Dosage: 10 MG, UNKNOWN
     Route: 065
     Dates: start: 20170228
  16. SYMBICORT [Concomitant]
     Active Substance: BUDESONIDE\FORMOTEROL FUMARATE DIHYDRATE
     Indication: Asthma
     Dosage: UNK, UNKNOWN
     Route: 065
     Dates: start: 20170829, end: 20170905

REACTIONS (8)
  - Abortion induced [Unknown]
  - Pain in jaw [Recovered/Resolved]
  - Pain in jaw [Recovered/Resolved]
  - Diarrhoea [Unknown]
  - Hot flush [Unknown]
  - Flushing [Unknown]
  - Palpitations [Unknown]
  - Maternal exposure during pregnancy [Unknown]

NARRATIVE: CASE EVENT DATE: 20170601
